FAERS Safety Report 24798673 (Version 1)
Quarter: 2025Q1

REPORT INFORMATION
  Report Type: Spontaneous
  Country: US (occurrence: US)
  Receive Date: 20250102
  Receipt Date: 20250102
  Transmission Date: 20250408
  Serious: Yes (Other)
  Sender: ALKEM
  Company Number: US-ALKEM LABORATORIES LIMITED-US-ALKEM-2024-04139

PATIENT
  Age: 62 Year
  Sex: Male

DRUGS (15)
  1. TACROLIMUS [Suspect]
     Active Substance: TACROLIMUS
     Indication: Chronic graft versus host disease
     Dosage: 2 MILLIGRAM, QD
     Route: 065
  2. TACROLIMUS [Suspect]
     Active Substance: TACROLIMUS
     Indication: Immunosuppressant drug therapy
  3. BETAMETHASONE [Suspect]
     Active Substance: BETAMETHASONE
     Indication: Chronic graft versus host disease
     Route: 061
  4. BETAMETHASONE [Suspect]
     Active Substance: BETAMETHASONE
     Indication: Immunosuppressant drug therapy
  5. PREDNISONE [Suspect]
     Active Substance: PREDNISONE
     Indication: Chronic graft versus host disease
     Dosage: 10 MILLIGRAM, QD
     Route: 048
  6. PREDNISONE [Suspect]
     Active Substance: PREDNISONE
     Indication: Immunosuppressant drug therapy
     Dosage: 50 MILLIGRAM, QD
     Route: 048
  7. PREDNISOLONE ACETATE [Suspect]
     Active Substance: PREDNISOLONE ACETATE
     Indication: Chronic graft versus host disease
     Dosage: UNK, BID
     Route: 061
  8. PREDNISOLONE ACETATE [Suspect]
     Active Substance: PREDNISOLONE ACETATE
     Indication: Immunosuppressant drug therapy
  9. LOTEPREDNOL [Suspect]
     Active Substance: LOTEPREDNOL
     Indication: Chronic graft versus host disease
     Dosage: UNK, QD
     Route: 061
  10. LOTEPREDNOL [Suspect]
     Active Substance: LOTEPREDNOL
     Indication: Immunosuppressant drug therapy
  11. HUMAN IMMUNOGLOBULIN G [Suspect]
     Active Substance: HUMAN IMMUNOGLOBULIN G
     Indication: Chronic graft versus host disease
     Route: 042
  12. HUMAN IMMUNOGLOBULIN G [Suspect]
     Active Substance: HUMAN IMMUNOGLOBULIN G
     Indication: Immunosuppressant drug therapy
  13. LIDOCAINE [Concomitant]
     Active Substance: LIDOCAINE
     Indication: Anaesthesia
     Route: 065
  14. VALACYCLOVIR [Concomitant]
     Active Substance: VALACYCLOVIR HYDROCHLORIDE
     Indication: Prophylaxis
     Dosage: 1 GRAM, QD
     Route: 065
  15. Trimethropim-Sulfamethaxozole [Concomitant]
     Indication: Prophylaxis
     Dosage: 400-80 MG DAILY
     Route: 065

REACTIONS (2)
  - Infectious crystalline keratopathy [Recovering/Resolving]
  - Ophthalmic herpes zoster [Recovering/Resolving]
